FAERS Safety Report 4600167-6 (Version None)
Quarter: 2005Q1

REPORT INFORMATION
  Report Type: 
  Country: None (occurrence: None)
  Receive Date: 20050307
  Receipt Date: 20050127
  Transmission Date: 20050727
  Serious: Yes (Other)
  Sender: FDA-Public Use
  Company Number: JP-ROCHE-394371

PATIENT
  Age: 43 Year
  Sex: Male

DRUGS (3)
  1. TAMIFLU [Suspect]
     Indication: INFLUENZA
     Route: 048
     Dates: start: 20050120, end: 20050123
  2. TAMIFLU [Suspect]
     Route: 048
     Dates: start: 20050124, end: 20050124
  3. LOXONIN [Concomitant]
     Route: 048
     Dates: start: 20050120, end: 20050123

REACTIONS (4)
  - LEUKOPENIA [None]
  - PANCYTOPENIA [None]
  - RASH [None]
  - THROMBOCYTOPENIA [None]
